FAERS Safety Report 7685151-0 (Version None)
Quarter: 2011Q3

REPORT INFORMATION
  Report Type: 
  Country: None (occurrence: None)
  Receive Date: 20110816
  Receipt Date: 20110810
  Transmission Date: 20111222
  Serious: Yes (Death)
  Sender: FDA-Public Use
  Company Number: AU-ASTELLAS-2011JP005564

PATIENT
  Age: 55 Year
  Sex: Male

DRUGS (8)
  1. TACROLIMUS [Suspect]
     Indication: IMMUNOSUPPRESSANT DRUG THERAPY
     Dosage: 3 MG, BID
     Route: 065
  2. VORICONAZOLE [Concomitant]
     Dosage: 200 MG, BID
     Route: 065
  3. PREDNISOLONE [Suspect]
     Indication: IMMUNOSUPPRESSANT DRUG THERAPY
     Dosage: 10 MG, UNKNOWN/D
     Route: 065
  4. VORICONAZOLE [Concomitant]
     Dosage: 6 MG/KG, BID
     Route: 065
  5. METHYLPREDNISOLONE [Suspect]
     Indication: IMMUNOSUPPRESSANT DRUG THERAPY
     Dosage: 1 G, UNKNOWN/D
     Route: 065
  6. VORICONAZOLE [Concomitant]
     Dosage: 4 MG, BID
     Route: 065
  7. MYCOPHENOLATE MOFETIL [Suspect]
     Indication: IMMUNOSUPPRESSANT DRUG THERAPY
     Dosage: 500 MG, TID
     Route: 065
  8. VORICONAZOLE [Concomitant]
     Dosage: 6 MG/KG, BID
     Route: 065

REACTIONS (2)
  - FUNGAL INFECTION [None]
  - MYCOTIC ANEURYSM [None]
